FAERS Safety Report 11779065 (Version 3)
Quarter: 2016Q1

REPORT INFORMATION
  Report Type: Report from Study
  Country: US (occurrence: US)
  Receive Date: 20151125
  Receipt Date: 20160112
  Transmission Date: 20160525
  Serious: Yes (Hospitalization)
  Sender: FDA-Public Use
  Company Number: US-JNJFOC-20151123433

PATIENT
  Age: 74 Year
  Sex: Male

DRUGS (11)
  1. PROSCAR [Concomitant]
     Active Substance: FINASTERIDE
  2. RELAFEN [Concomitant]
     Active Substance: NABUMETONE
  3. PRAVASTATIN [Concomitant]
     Active Substance: PRAVASTATIN\PRAVASTATIN SODIUM
  4. IMBRUVICA [Suspect]
     Active Substance: IBRUTINIB
     Indication: CHRONIC LYMPHOCYTIC LEUKAEMIA
     Route: 048
  5. ALLOPURINOL. [Concomitant]
     Active Substance: ALLOPURINOL
  6. NEURONTIN [Concomitant]
     Active Substance: GABAPENTIN
  7. ASPIRIN. [Concomitant]
     Active Substance: ASPIRIN
  8. LISINOPRIL. [Concomitant]
     Active Substance: LISINOPRIL
  9. ATORVASTATIN [Concomitant]
     Active Substance: ATORVASTATIN
  10. RITUXAN [Concomitant]
     Active Substance: RITUXIMAB
  11. NITROGLYCERIN. [Concomitant]
     Active Substance: NITROGLYCERIN

REACTIONS (5)
  - Platelet count decreased [Unknown]
  - Chest pain [Unknown]
  - Dizziness [Recovered/Resolved]
  - Coronary artery occlusion [Not Recovered/Not Resolved]
  - Muscle spasms [Unknown]

NARRATIVE: CASE EVENT DATE: 2015
